FAERS Safety Report 18974956 (Version 1)
Quarter: 2021Q1

REPORT INFORMATION
  Report Type: Spontaneous
  Country: CA (occurrence: CA)
  Receive Date: 20210305
  Receipt Date: 20210305
  Transmission Date: 20210420
  Serious: Yes (Life-Threatening, Hospitalization)
  Sender: FDA-Public Use
  Company Number: CA-ASTRAZENECA-2021A106868

PATIENT
  Age: 55 Year
  Sex: Male

DRUGS (3)
  1. IMFINZI [Suspect]
     Active Substance: DURVALUMAB
     Indication: LUNG CARCINOMA CELL TYPE UNSPECIFIED STAGE III
     Route: 041
  2. LEVOTHYROXINE. [Concomitant]
     Active Substance: LEVOTHYROXINE
  3. OPDIVO [Suspect]
     Active Substance: NIVOLUMAB
     Dosage: 100MG/10ML (SINGLE?USE VIAL)
     Route: 041

REACTIONS (5)
  - Dyspnoea [Unknown]
  - Organising pneumonia [Unknown]
  - Pulmonary embolism [Unknown]
  - Acute respiratory failure [Unknown]
  - Pneumonitis [Unknown]
